FAERS Safety Report 19942752 (Version 2)
Quarter: 2022Q1

REPORT INFORMATION
  Report Type: Other
  Country: US (occurrence: None)
  Receive Date: 20211011
  Receipt Date: 20220127
  Transmission Date: 20220423
  Serious: Yes (Other)
  Sender: FDA-Public Use
  Company Number: US-ROCHE-2929205

PATIENT

DRUGS (1)
  1. RITUXIMAB [Suspect]
     Active Substance: RITUXIMAB
     Indication: Prophylaxis against transplant rejection
     Route: 041

REACTIONS (6)
  - Pneumonia [Unknown]
  - Respiratory tract infection viral [Unknown]
  - Pneumothorax [Unknown]
  - Cytomegalovirus infection [Unknown]
  - Parainfluenzae virus infection [Unknown]
  - Metapneumovirus infection [Unknown]
